FAERS Safety Report 9123516 (Version 2)
Quarter: 2013Q2

REPORT INFORMATION
  Report Type: Spontaneous
  Country: US (occurrence: US)
  Receive Date: 20130227
  Receipt Date: 20130430
  Transmission Date: 20140414
  Serious: No
  Sender: FDA-Public Use
  Company Number: US-009507513-1302USA008773

PATIENT
  Age: 24 Year
  Sex: Female
  Weight: 69.84 kg

DRUGS (1)
  1. IMPLANON [Suspect]
     Indication: CONTRACEPTION
     Dosage: 1 STANDARD DOSE
     Route: 059
     Dates: start: 20100824, end: 20110222

REACTIONS (1)
  - Metrorrhagia [Unknown]
